FAERS Safety Report 11854086 (Version 2)
Quarter: 2016Q4

REPORT INFORMATION
  Report Type: Spontaneous
  Country: US (occurrence: US)
  Receive Date: 20151219
  Receipt Date: 20161222
  Transmission Date: 20170206
  Serious: No
  Sender: FDA-Public Use
  Company Number: US-BAUSCH-BL-2015-025388

PATIENT
  Age: 60 Year
  Sex: Female

DRUGS (3)
  1. XENAZINE [Suspect]
     Active Substance: TETRABENAZINE
     Indication: TARDIVE DYSKINESIA
     Route: 048
     Dates: start: 201510
  2. XENAZINE [Suspect]
     Active Substance: TETRABENAZINE
     Route: 048
     Dates: start: 201510
  3. XENAZINE [Suspect]
     Active Substance: TETRABENAZINE
     Dosage: ONE HALF TABLET, FOR ONE WEEK
     Route: 048
     Dates: start: 20151020

REACTIONS (5)
  - Depression [Unknown]
  - Crying [Unknown]
  - Off label use [Not Recovered/Not Resolved]
  - Muscle spasms [Recovering/Resolving]
  - Prescribed overdose [Recovered/Resolved]

NARRATIVE: CASE EVENT DATE: 201510
